FAERS Safety Report 4700823-5 (Version None)
Quarter: 2005Q2

REPORT INFORMATION
  Report Type: 
  Country: None (occurrence: None)
  Receive Date: 20050114
  Receipt Date: 20050114
  Transmission Date: 20051028
  Serious: No
  Sender: FDA-Public Use
  Company Number: None

PATIENT
  Sex: Female
  Weight: 55.7924 kg

DRUGS (1)
  1. GLYBURIDE (MICRONIZED) [Suspect]
     Indication: DIABETES MELLITUS
     Dosage: 6 MG ONE BID
     Dates: start: 19930101

REACTIONS (1)
  - DIABETES MELLITUS INADEQUATE CONTROL [None]
